FAERS Safety Report 5365011-0 (Version None)
Quarter: 2007Q2

REPORT INFORMATION
  Report Type: 
  Country: None (occurrence: None)
  Receive Date: 20070604
  Receipt Date: 20070416
  Transmission Date: 20071010
  Serious: Yes (Other)
  Sender: FDA-Public Use
  Company Number: 2007-0011949

PATIENT
  Age: 42 Year
  Sex: Male

DRUGS (4)
  1. TRUVADA [Suspect]
     Indication: ACQUIRED IMMUNODEFICIENCY SYNDROME
  2. MK-0518 [Concomitant]
  3. PREZISTA [Concomitant]
  4. TMC-125 [Concomitant]

REACTIONS (1)
  - LACTIC ACIDOSIS [None]
